FAERS Safety Report 10083846 (Version 2)
Quarter: 2014Q2

REPORT INFORMATION
  Report Type: Spontaneous
  Country: US (occurrence: US)
  Receive Date: 20140417
  Receipt Date: 20140505
  Transmission Date: 20141212
  Serious: Yes (Other)
  Sender: FDA-Public Use
  Company Number: US-PFIZER INC-2014107762

PATIENT
  Age: 71 Year
  Sex: Male
  Weight: 74.83 kg

DRUGS (8)
  1. CHANTIX [Suspect]
     Indication: SMOKING CESSATION THERAPY
     Dosage: 0.5 MG, 1X/DAY
     Route: 048
     Dates: start: 201403, end: 2014
  2. CHANTIX [Suspect]
     Dosage: 1 MG, 2X/DAY
     Route: 048
     Dates: start: 2014
  3. PENTOXIFYLLINE ER [Concomitant]
     Dosage: 400 MG, UNK
  4. TERAZOSIN [Concomitant]
     Dosage: 5 MG, 1X/DAY
  5. SIMVASTATIN [Concomitant]
     Dosage: 40 MG, UNK
  6. TYLENOL [Concomitant]
     Dosage: UNK
  7. BABY ASPIRIN [Concomitant]
     Dosage: UNK, 1X/DAY
  8. ADVIL [Concomitant]
     Indication: PAIN
     Dosage: UNK

REACTIONS (4)
  - Mass [Unknown]
  - Inflammation [Unknown]
  - Constipation [Not Recovered/Not Resolved]
  - Insomnia [Not Recovered/Not Resolved]
